FAERS Safety Report 9538614 (Version 1)
Quarter: 2013Q2

REPORT INFORMATION
  Report Type: Spontaneous
  Country: US (occurrence: None)
  Receive Date: 20130517
  Receipt Date: 20130517
  Transmission Date: 20140414
  Serious: No
  Sender: FDA-Public Use
  Company Number: 1000042379

PATIENT
  Sex: Female

DRUGS (2)
  1. VIIBRYD [Suspect]
     Indication: POST-TRAUMATIC STRESS DISORDER
     Dosage: 10 MG (10 MG, 1 IN 1 D), ORAL
     Route: 048
     Dates: start: 201301, end: 201301
  2. VIIBRYD [Suspect]
     Indication: POST-TRAUMATIC STRESS DISORDER
     Dosage: 40 MG, (40 MG, 1 IN 1 D), ORAL
     Route: 048
     Dates: start: 201301, end: 201301

REACTIONS (4)
  - Diarrhoea [None]
  - Vomiting [None]
  - Decreased appetite [None]
  - Off label use [None]
